FAERS Safety Report 19979032 (Version 2)
Quarter: 2021Q4

REPORT INFORMATION
  Report Type: Spontaneous
  Country: JP (occurrence: JP)
  Receive Date: 20211021
  Receipt Date: 20211203
  Transmission Date: 20220303
  Serious: Yes (Other)
  Sender: FDA-Public Use
  Company Number: JP-ONO-2021JP024261

PATIENT
  Age: 62 Year
  Sex: Male

DRUGS (1)
  1. PARSABIV [Suspect]
     Active Substance: ETELCALCETIDE HYDROCHLORIDE
     Indication: Hyperparathyroidism secondary
     Dosage: UNK
     Route: 010
     Dates: start: 202104

REACTIONS (2)
  - Hepatitis [Unknown]
  - Colon cancer [Unknown]

NARRATIVE: CASE EVENT DATE: 20210921
